FAERS Safety Report 8185163-7 (Version None)
Quarter: 2012Q1

REPORT INFORMATION
  Report Type: 
  Country: None (occurrence: None)
  Receive Date: 20120305
  Receipt Date: 20120229
  Transmission Date: 20120608
  Serious: Yes (Other)
  Sender: FDA-Public Use
  Company Number: US-ROCHE-1018137

PATIENT

DRUGS (1)
  1. ZELBORAF [Suspect]
     Indication: PRODUCT USED FOR UNKNOWN INDICATION
     Route: 065

REACTIONS (6)
  - LACRIMATION INCREASED [None]
  - EYE IRRITATION [None]
  - RENAL IMPAIRMENT [None]
  - ABDOMINAL PAIN UPPER [None]
  - NEOPLASM PROGRESSION [None]
  - ERYTHEMA [None]
